FAERS Safety Report 8063800-5 (Version None)
Quarter: 2012Q1

REPORT INFORMATION
  Report Type: 
  Country: None (occurrence: None)
  Receive Date: 20120123
  Receipt Date: 20120109
  Transmission Date: 20120608
  Serious: Yes (Death)
  Sender: FDA-Public Use
  Company Number: US-MERCK-1201USA02208

PATIENT
  Age: 71 Year
  Sex: Male

DRUGS (1)
  1. PRINIVIL [Suspect]
     Route: 048

REACTIONS (1)
  - ADVERSE DRUG REACTION [None]
